FAERS Safety Report 4943419-2 (Version None)
Quarter: 2006Q1

REPORT INFORMATION
  Report Type: 
  Country: None (occurrence: None)
  Receive Date: 20060314
  Receipt Date: 20060303
  Transmission Date: 20060701
  Serious: Yes (Other)
  Sender: FDA-Public Use
  Company Number: DK-JNJFOC-20060101529

PATIENT
  Sex: Male

DRUGS (9)
  1. REMICADE [Suspect]
     Route: 042
  2. METHOTREXATE [Concomitant]
     Indication: RHEUMATOID ARTHRITIS
     Dosage: DURATION: APPROXIMATELY 2 YEARS.
     Route: 065
  3. FOLIMET [Concomitant]
     Indication: RHEUMATOID ARTHRITIS
     Dosage: DURATION: APPROXIMATELY 2 YEARS.
     Route: 065
  4. LANSOPRAZOLE [Concomitant]
     Indication: DYSPEPSIA
     Dosage: DURATION: APPROXIMATELY 3 YEARS.
     Route: 065
  5. SELOZOK [Concomitant]
     Dosage: DURATION: APPROXIMATELY 10 YEARS.
     Route: 065
  6. MAREVAN [Concomitant]
     Dosage: VARYING DOSE.  DURATION: APPROXIMATELY 2 YEARS.
     Route: 065
  7. VIBEDEN [Concomitant]
     Indication: ANAEMIA
     Dosage: 1 ML/3 MDR.  DURATION: APPROXIMATELY 3 YEARS.
     Route: 065
  8. IBUPROFEN [Concomitant]
     Indication: RHEUMATOID ARTHRITIS
     Dosage: DURATION: APPROXIMATELY 1 YEAR.
     Route: 065
  9. PREDNISOLONE [Concomitant]
     Indication: RHEUMATOID ARTHRITIS
     Dosage: ^WELL TREATED DOSIS^
     Route: 065

REACTIONS (4)
  - ASTHMA [None]
  - BRONCHITIS [None]
  - CHLAMYDIAL INFECTION [None]
  - LICHENOID KERATOSIS [None]
